FAERS Safety Report 17110659 (Version 1)
Quarter: 2019Q4

REPORT INFORMATION
  Report Type: Spontaneous
  Country: FR (occurrence: FR)
  Receive Date: 20191204
  Receipt Date: 20191204
  Transmission Date: 20200122
  Serious: Yes (Other)
  Sender: FDA-Public Use
  Company Number: FR-MYLANLABS-2019M1117451

PATIENT
  Age: 33 Year
  Sex: Male
  Weight: 74 kg

DRUGS (5)
  1. EFUDIX 5 POUR CENT, CR?ME [Suspect]
     Active Substance: FLUOROURACIL
     Indication: SKIN PAPILLOMA
     Dosage: UNK
     Route: 003
     Dates: start: 20190907, end: 20190922
  2. VITAMINE B12 [Concomitant]
     Active Substance: CYANOCOBALAMIN
     Dosage: UNK
  3. VALACICLOVIR [Concomitant]
     Active Substance: VALACYCLOVIR HYDROCHLORIDE
     Dosage: UNK
  4. REVOLADE [Concomitant]
     Active Substance: ELTROMBOPAG
     Dosage: UNK
  5. CLAIRYG [Concomitant]
     Active Substance: HUMAN IMMUNOGLOBULIN G
     Dosage: UNK

REACTIONS (3)
  - Gingival bleeding [Not Recovered/Not Resolved]
  - Petechiae [Recovered/Resolved]
  - Thrombocytopenia [Not Recovered/Not Resolved]

NARRATIVE: CASE EVENT DATE: 20190925
